FAERS Safety Report 8151219-8 (Version None)
Quarter: 2012Q1

REPORT INFORMATION
  Report Type: 
  Country: None (occurrence: None)
  Receive Date: 20120220
  Receipt Date: 20120208
  Transmission Date: 20120608
  Serious: Yes (Other)
  Sender: FDA-Public Use
  Company Number: PHFR2012GB001066

PATIENT
  Age: 18 Year
  Sex: Male

DRUGS (3)
  1. TOCILIZUMAB [Suspect]
     Dosage: 8 MG/KG, 1/4 WEEKS
     Dates: start: 20101201
  2. CYCLOSPORINE [Concomitant]
     Dosage: UNK
     Dates: start: 20090101
  3. MYCOPHENOLATE MOFETIL [Suspect]
     Dosage: UNK
     Dates: start: 20090101

REACTIONS (3)
  - RETICULOCYTOSIS [None]
  - HAEMOLYSIS [None]
  - BLOOD BILIRUBIN INCREASED [None]
